FAERS Safety Report 15713148 (Version 1)
Quarter: 2018Q4

REPORT INFORMATION
  Report Type: Spontaneous
  Country: GB (occurrence: GB)
  Receive Date: 20181212
  Receipt Date: 20181212
  Transmission Date: 20190205
  Serious: Yes (Life-Threatening, Hospitalization)
  Sender: FDA-Public Use
  Company Number: GB-ABBVIE-18K-167-2588266-00

PATIENT
  Age: 47 Year
  Sex: Male
  Weight: 118 kg

DRUGS (7)
  1. TEICOPLANIN [Concomitant]
     Active Substance: TEICOPLANIN
     Indication: PRODUCT USED FOR UNKNOWN INDICATION
  2. METFORMIN [Concomitant]
     Active Substance: METFORMIN HYDROCHLORIDE
     Indication: PRODUCT USED FOR UNKNOWN INDICATION
  3. GENTAMICIN. [Concomitant]
     Active Substance: GENTAMICIN
     Indication: PRODUCT USED FOR UNKNOWN INDICATION
  4. VENETOCLAX. [Suspect]
     Active Substance: VENETOCLAX
     Indication: CHRONIC LYMPHOCYTIC LEUKAEMIA
     Route: 048
     Dates: start: 20180619
  5. TAZOCIN [Concomitant]
     Active Substance: PIPERACILLIN SODIUM\TAZOBACTAM SODIUM
     Indication: PRODUCT USED FOR UNKNOWN INDICATION
  6. GLICLAZIDE [Concomitant]
     Active Substance: GLICLAZIDE
     Indication: PRODUCT USED FOR UNKNOWN INDICATION
  7. COCODAMOL [Concomitant]
     Active Substance: ACETAMINOPHEN\CODEINE PHOSPHATE
     Indication: PRODUCT USED FOR UNKNOWN INDICATION

REACTIONS (14)
  - Renal pain [Unknown]
  - Arterial haemorrhage [Recovered/Resolved with Sequelae]
  - Hypotension [Unknown]
  - Tachycardia [Unknown]
  - Flank pain [Unknown]
  - Renal aneurysm [Recovered/Resolved with Sequelae]
  - Perirenal haematoma [Unknown]
  - Sepsis [Unknown]
  - Vomiting [Unknown]
  - Abdominal pain upper [Unknown]
  - Renal infarct [Unknown]
  - Shock [Unknown]
  - Abnormal loss of weight [Unknown]
  - Nausea [Unknown]

NARRATIVE: CASE EVENT DATE: 20181107
